FAERS Safety Report 7971260-5 (Version None)
Quarter: 2011Q4

REPORT INFORMATION
  Report Type: 
  Country: None (occurrence: None)
  Receive Date: 20111212
  Receipt Date: 20101117
  Transmission Date: 20120403
  Serious: No
  Sender: FDA-Public Use
  Company Number: US-BRISTOL-MYERS SQUIBB COMPANY-15394315

PATIENT
  Age: 4 Decade
  Sex: Female

DRUGS (2)
  1. IXEMPRA KIT [Suspect]
     Dosage: INITIAL DOSE 40MG/M2 DOSE WAS DECREASED TO 32MG/M2, HELD FOR 3 WEEKS AND THE DOSE WAS LOWERED.
  2. XELODA [Concomitant]

REACTIONS (4)
  - NEUTROPENIA [None]
  - STOMATITIS [None]
  - MYALGIA [None]
  - ARTHRALGIA [None]
